FAERS Safety Report 13375027 (Version 2)
Quarter: 2017Q2

REPORT INFORMATION
  Report Type: Spontaneous
  Country: US (occurrence: US)
  Receive Date: 20170327
  Receipt Date: 20170519
  Transmission Date: 20170830
  Serious: Yes (Other)
  Sender: FDA-Public Use
  Company Number: US-PFIZER INC-2015238732

PATIENT
  Age: 21 Year
  Sex: Male
  Weight: 81.63 kg

DRUGS (2)
  1. XYNTHA [Suspect]
     Active Substance: ANTIHEMOPHILIC FACTOR, HUMAN RECOMBINANT RESIDUES 743-1636 DELETED
     Dosage: 4000 IU, WEEKLY
     Route: 041
  2. XYNTHA [Suspect]
     Active Substance: ANTIHEMOPHILIC FACTOR, HUMAN RECOMBINANT RESIDUES 743-1636 DELETED
     Indication: HAEMORRHAGE
     Dosage: 4000 IU, AS NEEDED (3X WEEK)
     Route: 041
     Dates: start: 20170302

REACTIONS (4)
  - Gait disturbance [Unknown]
  - Intentional dose omission [Unknown]
  - Haemarthrosis [Unknown]
  - Joint swelling [Unknown]
